FAERS Safety Report 7282643-3 (Version None)
Quarter: 2011Q1

REPORT INFORMATION
  Report Type: 
  Country: None (occurrence: None)
  Receive Date: 20110209
  Receipt Date: 20110126
  Transmission Date: 20110831
  Serious: Yes (Life-Threatening)
  Sender: FDA-Public Use
  Company Number: JP-BAYER-2011-008927

PATIENT
  Age: 60 Year
  Sex: Male

DRUGS (1)
  1. SORAFENIB [Suspect]
     Indication: HEPATIC NEOPLASM MALIGNANT
     Dosage: 400 MG, BID
     Route: 048
     Dates: start: 20100127, end: 20101230

REACTIONS (7)
  - METASTASES TO CENTRAL NERVOUS SYSTEM [None]
  - HEPATIC FUNCTION ABNORMAL [None]
  - RESPIRATORY DISORDER [None]
  - FATIGUE [None]
  - OROPHARYNGEAL PAIN [None]
  - ALOPECIA [None]
  - PALMAR-PLANTAR ERYTHRODYSAESTHESIA SYNDROME [None]
